FAERS Safety Report 18570127 (Version 1)
Quarter: 2020Q4

REPORT INFORMATION
  Report Type: Spontaneous
  Country: US (occurrence: US)
  Receive Date: 20201202
  Receipt Date: 20201202
  Transmission Date: 20210114
  Serious: Yes (Other)
  Sender: FDA-Public Use
  Company Number: US-FRESENIUS MEDICAL CARE RENAL THERAPIES GROUP-FMC-2012-001458

PATIENT
  Age: 48 Year
  Sex: Male
  Weight: 71 kg

DRUGS (14)
  1. DELFLEX WITH DEXTROSE 4.25% LOW MAGNESIUM LOW CALCIUM [Suspect]
     Active Substance: CALCIUM CHLORIDE\DEXTROSE\MAGNESIUM CHLORIDE\SODIUM CHLORIDE\SODIUM LACTATE
     Indication: END STAGE RENAL DISEASE
     Dosage: FILL VOLUME 2300 ML, 4 EXCHANGES, LAST FILL 1500 ML, NO DAYTIME EXCHANGE, DWELL TIME 1.0 HOUR 44 MIN
     Route: 033
     Dates: start: 20170713
  2. TUMS [Concomitant]
     Active Substance: CALCIUM CARBONATE
  3. DELFLEX WITH DEXTROSE 1.5% LOW MAGNESIUM LOW CALCIUM [Suspect]
     Active Substance: CALCIUM CHLORIDE\DEXTROSE\MAGNESIUM CHLORIDE\SODIUM CHLORIDE\SODIUM LACTATE
     Indication: END STAGE RENAL DISEASE
     Dosage: FILL VOLUME 2300 ML, 4 EXCHANGES, LAST FILL 1500 ML, NO DAYTIME EXCHANGE, DWELL TIME 1.0 HOUR 44 MIN
     Route: 033
     Dates: start: 20170713
  4. HYDRALAZINE [Concomitant]
     Active Substance: HYDRALAZINE HYDROCHLORIDE
  5. LISINOPRIL. [Concomitant]
     Active Substance: LISINOPRIL
  6. VITAMIN D3 [Concomitant]
     Active Substance: CHOLECALCIFEROL
  7. CALCITRIOL. [Concomitant]
     Active Substance: CALCITRIOL
  8. DELFLEX WITH DEXTROSE 2.5% LOW MAGNESIUM LOW CALCIUM [Suspect]
     Active Substance: CALCIUM CHLORIDE\DEXTROSE\MAGNESIUM CHLORIDE\SODIUM CHLORIDE\SODIUM LACTATE
     Indication: END STAGE RENAL DISEASE
     Dosage: FILL VOLUME 2300 ML, 4 EXCHANGES, LAST FILL 1500 ML, NO DAYTIME EXCHANGE, DWELL TIME 1.0 HOUR 44 MIN
     Route: 033
     Dates: start: 20170713
  9. COREG [Concomitant]
     Active Substance: CARVEDILOL
  10. SEVELAMER [Concomitant]
     Active Substance: SEVELAMER
  11. MIRCERA [Concomitant]
     Active Substance: METHOXY POLYETHYLENE GLYCOL-EPOETIN BETA
  12. VENOFER [Concomitant]
     Active Substance: IRON SUCROSE
  13. AMLODIPINE [Concomitant]
     Active Substance: AMLODIPINE BESYLATE
  14. GENTAMYCIN [Concomitant]
     Active Substance: GENTAMICIN

REACTIONS (1)
  - Peritonitis bacterial [Recovering/Resolving]
